FAERS Safety Report 9819880 (Version 1)
Quarter: 2013Q1

REPORT INFORMATION
  Report Type: Spontaneous
  Country: US (occurrence: None)
  Receive Date: 20130107
  Receipt Date: 20130107
  Transmission Date: 20140127
  Serious: No
  Sender: FDA-Public Use
  Company Number: PHEH2012US019322

PATIENT
  Age: 34 Year
  Sex: Female

DRUGS (1)
  1. GILENYA (FTY) CAPSULE, 0.5MG [Suspect]
     Indication: MULTIPLE SCLEROSIS
     Route: 048
     Dates: start: 20120919

REACTIONS (8)
  - Malaise [None]
  - Chest discomfort [None]
  - Multiple sclerosis relapse [None]
  - Burning sensation [None]
  - Hypoaesthesia [None]
  - Eye movement disorder [None]
  - Vision blurred [None]
  - Balance disorder [None]
